FAERS Safety Report 7314241-7 (Version None)
Quarter: 2011Q1

REPORT INFORMATION
  Report Type: 
  Country: None (occurrence: None)
  Receive Date: 20110225
  Receipt Date: 20100715
  Transmission Date: 20110831
  Serious: No
  Sender: FDA-Public Use
  Company Number: US-MYLANLABS-2010S1010851

PATIENT
  Sex: Male
  Weight: 88 kg

DRUGS (2)
  1. AMNESTEEM [Suspect]
     Indication: ACNE
     Route: 048
     Dates: start: 20100415, end: 20100614
  2. AMNESTEEM [Suspect]
     Indication: SEBACEOUS HYPERPLASIA
     Route: 048
     Dates: start: 20100415, end: 20100614

REACTIONS (4)
  - DRY EYE [None]
  - EAR DISORDER [None]
  - NASAL DRYNESS [None]
  - DRY SKIN [None]
